FAERS Safety Report 7481881-4 (Version None)
Quarter: 2011Q2

REPORT INFORMATION
  Report Type: 
  Country: None (occurrence: None)
  Receive Date: 20110516
  Receipt Date: 20110425
  Transmission Date: 20111010
  Serious: Yes (Hospitalization, Other)
  Sender: FDA-Public Use
  Company Number: US-BAYER-201030254NA

PATIENT
  Age: 18 Year
  Sex: Female
  Weight: 121.9 kg

DRUGS (16)
  1. EFFEXOR [Concomitant]
  2. YASMIN [Suspect]
     Indication: ORAL CONTRACEPTION
     Dosage: UNK UNK, UNK
     Route: 048
     Dates: start: 20030101, end: 20030501
  3. YASMIN [Suspect]
     Indication: AMENORRHOEA
  4. DROSPIRENONE AND ETHINYL ESTRADIOL [Suspect]
     Indication: PRODUCT USED FOR UNKNOWN INDICATION
  5. PROMETHAZINE [Concomitant]
  6. YASMIN [Suspect]
     Indication: POLYCYSTIC OVARIES
  7. ANTIBIOTICS [Concomitant]
  8. AMPHETAMINE AND DEXTROAMPHETAMINE SALTS [Concomitant]
  9. NSAID'S [Concomitant]
  10. OXYCODONE HCL [Concomitant]
  11. PROVIGIL [Concomitant]
  12. LORTAB [Concomitant]
  13. YAZ [Suspect]
     Indication: PRODUCT USED FOR UNKNOWN INDICATION
  14. SUBOXONE [Concomitant]
  15. HYDROCODONE BITARTRATE [Concomitant]
  16. ADDERALL 10 [Concomitant]

REACTIONS (7)
  - POST-TRAUMATIC STRESS DISORDER [None]
  - ATTENTION DEFICIT/HYPERACTIVITY DISORDER [None]
  - DEEP VEIN THROMBOSIS [None]
  - PROTEIN S DEFICIENCY [None]
  - DEPRESSION [None]
  - PULMONARY EMBOLISM [None]
  - ANXIETY [None]
